FAERS Safety Report 9332345 (Version 1)
Quarter: 2013Q2

REPORT INFORMATION
  Report Type: Spontaneous
  Country: US (occurrence: US)
  Receive Date: 20130606
  Receipt Date: 20130606
  Transmission Date: 20140414
  Serious: Yes (Death, Other)
  Sender: FDA-Public Use
  Company Number: US-RB-054856-13

PATIENT
  Age: 52 Year
  Sex: Male

DRUGS (1)
  1. MUCINEX DM [Suspect]
     Indication: SINUS DISORDER
     Route: 048

REACTIONS (1)
  - Myocardial infarction [Fatal]
